FAERS Safety Report 25421442 (Version 1)
Quarter: 2025Q2

REPORT INFORMATION
  Report Type: Other
  Country: GB (occurrence: GB)
  Receive Date: 20250611
  Receipt Date: 20250611
  Transmission Date: 20250717
  Serious: Yes (Other)
  Sender: GLENMARK
  Company Number: GB-MHRA-TPP56882148C9603700YC1748354740591

PATIENT
  Age: 84 Year
  Sex: Male
  Weight: 102 kg

DRUGS (14)
  1. DAPAGLIFLOZIN [Suspect]
     Active Substance: DAPAGLIFLOZIN
     Indication: Ill-defined disorder
     Dosage: 10 MILLIGRAM, QD
     Route: 065
     Dates: start: 20250319
  2. SPIRONOLACTONE [Concomitant]
     Active Substance: SPIRONOLACTONE
     Indication: Ill-defined disorder
     Route: 065
     Dates: start: 20250430
  3. EPLERENONE [Concomitant]
     Active Substance: EPLERENONE
     Indication: Ill-defined disorder
     Dosage: 1 DOSAGE FORM, OD, TAKE ONE TABLET DAILY
     Route: 065
     Dates: start: 20250521
  4. BISOPROLOL [Concomitant]
     Active Substance: BISOPROLOL
     Indication: Ill-defined disorder
     Dosage: UNK, OD, ONE TO BE TAKEN EACH DAY
     Route: 065
     Dates: start: 20240927
  5. CANDESARTAN [Concomitant]
     Active Substance: CANDESARTAN
     Indication: Ill-defined disorder
     Dosage: UNK, OD, ONE TO BE TAKEN EACH DAY
     Route: 065
     Dates: start: 20240927, end: 20250319
  6. FINASTERIDE [Concomitant]
     Active Substance: FINASTERIDE
     Indication: Ill-defined disorder
     Dosage: UNK, OD, ONE TO BE TAKEN EACH DAY
     Route: 065
     Dates: start: 20240927
  7. FUROSEMIDE [Concomitant]
     Active Substance: FUROSEMIDE
     Indication: Ill-defined disorder
     Route: 065
     Dates: start: 20240927
  8. NIFEDIPINE [Concomitant]
     Active Substance: NIFEDIPINE
     Indication: Ill-defined disorder
     Dosage: UNK, BID, ONE TO BE TAKEN TWICE A DAY
     Route: 065
     Dates: start: 20240927
  9. OMEPRAZOLE [Concomitant]
     Active Substance: OMEPRAZOLE
     Indication: Ill-defined disorder
     Dosage: UNK, BID, ONE TO BE TAKEN TWICE A DAY
     Route: 065
     Dates: start: 20240927
  10. SIMVASTATIN [Concomitant]
     Active Substance: SIMVASTATIN
     Indication: Ill-defined disorder
     Dosage: UNK, OD, ONE TO BE TAKEN AT NIGHT
     Route: 065
     Dates: start: 20240927
  11. TAMSULOSIN HYDROCHLORIDE [Concomitant]
     Active Substance: TAMSULOSIN HYDROCHLORIDE
     Indication: Ill-defined disorder
     Dosage: UNK, OD, ONE TO BE TAKEN EACH DAY
     Route: 065
     Dates: start: 20240927
  12. APIXABAN [Concomitant]
     Active Substance: APIXABAN
     Indication: Ill-defined disorder
     Dosage: UNK, BID, TAKE ONE TWICE DAILY
     Route: 065
     Dates: start: 20241101
  13. FERROUS SULFATE [Concomitant]
     Active Substance: FERROUS SULFATE
     Indication: Ill-defined disorder
     Dosage: UNK, OD, TAKE ONE ONCE DAILY
     Route: 065
     Dates: start: 20250206
  14. SACUBITRIL [Concomitant]
     Active Substance: SACUBITRIL
     Indication: Ill-defined disorder
     Dosage: 1 DOSAGE FORM, BID, TAKE ONE TABLET TWICE DAILY
     Route: 065
     Dates: start: 20250319

REACTIONS (3)
  - Mental impairment [Unknown]
  - Feeling abnormal [Unknown]
  - Lethargy [Unknown]

NARRATIVE: CASE EVENT DATE: 20250527
